FAERS Safety Report 16692381 (Version 1)
Quarter: 2019Q3

REPORT INFORMATION
  Report Type: Spontaneous
  Country: US (occurrence: US)
  Receive Date: 20190812
  Receipt Date: 20190812
  Transmission Date: 20191004
  Serious: Yes (Other)
  Sender: FDA-Public Use
  Company Number: US-PROCTER_AND_GAMBLE-GS19082041

PATIENT

DRUGS (1)
  1. PEPTO-BISMOL NOS [Suspect]
     Active Substance: BISMUTH SUBSALICYLATE OR CALCIUM CARBONATE
     Route: 048

REACTIONS (4)
  - Anaphylactic reaction [Unknown]
  - Labelled drug-disease interaction medication error [Unknown]
  - Off label use [Unknown]
  - Documented hypersensitivity to administered product [Unknown]
